FAERS Safety Report 20099302 (Version 1)
Quarter: 2021Q4

REPORT INFORMATION
  Report Type: Spontaneous
  Country: CN (occurrence: CN)
  Receive Date: 20211122
  Receipt Date: 20211122
  Transmission Date: 20220303
  Serious: Yes (Other)
  Sender: FDA-Public Use
  Company Number: CN-BAXTER-2021BAX036429

PATIENT
  Age: 43 Year
  Sex: Female
  Weight: 65 kg

DRUGS (12)
  1. CYCLOPHOSPHAMIDE [Suspect]
     Active Substance: CYCLOPHOSPHAMIDE
     Indication: Breast cancer female
     Dosage: FIRST CYCLE OF CHEMOTHERAPY
     Route: 042
  2. CYCLOPHOSPHAMIDE [Suspect]
     Active Substance: CYCLOPHOSPHAMIDE
     Dosage: CYCLOPHOSPHAMIDE (ENDOXAN CTX) 1000 MG + NS 50ML, SECOND CYCLE OF CHEMOTHERAPY
     Route: 042
     Dates: start: 20211008, end: 20211008
  3. CYCLOPHOSPHAMIDE [Suspect]
     Active Substance: CYCLOPHOSPHAMIDE
     Dosage: CYCLOPHOSPHAMIDE (ENDOXAN CTX) + NS , DOSE REINTRODUCED
     Route: 042
  4. SODIUM CHLORIDE [Suspect]
     Active Substance: SODIUM CHLORIDE
     Indication: Medication dilution
     Dosage: FIRST CYCLE OF CHEMOTHERAPY, CYCLOPHOSPHAMIDE DILUTED WITH NS
     Route: 042
  5. SODIUM CHLORIDE [Suspect]
     Active Substance: SODIUM CHLORIDE
     Dosage: FIRST CYCLE OF CHEMOTHERAPY, DOCETAXEL DILUTED WITH NS
     Route: 041
  6. SODIUM CHLORIDE [Suspect]
     Active Substance: SODIUM CHLORIDE
     Dosage: DOCETAXEL INJECTION (AISU) 128 MG + NS 250ML, SECOND CYCLE OF CHEMOTHERAPY
     Route: 041
     Dates: start: 20211008, end: 20211008
  7. SODIUM CHLORIDE [Suspect]
     Active Substance: SODIUM CHLORIDE
     Dosage: CYCLOPHOSPHAMIDE (ENDOXAN CTX) 1000 MG + NS 50ML, SECOND CYCLE OF CHEMOTHERAPY
     Route: 042
     Dates: start: 20211008, end: 20211008
  8. SODIUM CHLORIDE [Suspect]
     Active Substance: SODIUM CHLORIDE
     Dosage: DOSE REINTRODUCED, CYCLOPHOSPHAMIDE DILUTED WITH NS
     Route: 042
  9. SODIUM CHLORIDE [Suspect]
     Active Substance: SODIUM CHLORIDE
     Dosage: DOSE REINTRODUCED, DOCETAXEL DILUTED WITH NS
     Route: 041
  10. DOCETAXEL [Suspect]
     Active Substance: DOCETAXEL
     Indication: Breast cancer female
     Dosage: DOCETAXEL INJECTION (AISU) + NS , FIRST CYCLE OF CHEMOTHERAPY
     Route: 041
  11. DOCETAXEL [Suspect]
     Active Substance: DOCETAXEL
     Dosage: DOCETAXEL INJECTION (AISU) 128 MG + NS 250ML  SECOND CYCLE OF CHEMOTHERAPY
     Route: 041
     Dates: start: 20211008, end: 20211008
  12. DOCETAXEL [Suspect]
     Active Substance: DOCETAXEL
     Dosage: DOCETAXEL INJECTION (AISU) + NS , DOSE REINTRODUCED
     Route: 041

REACTIONS (2)
  - White blood cell count decreased [Recovered/Resolved]
  - Agranulocytosis [Recovered/Resolved]

NARRATIVE: CASE EVENT DATE: 20211014
